FAERS Safety Report 11891053 (Version 3)
Quarter: 2016Q1

REPORT INFORMATION
  Report Type: Report from Study
  Country: AU (occurrence: AU)
  Receive Date: 20160106
  Receipt Date: 20160219
  Transmission Date: 20160526
  Serious: Yes (Hospitalization)
  Sender: FDA-Public Use
  Company Number: AU-ALEXION PHARMACEUTICALS INC-A201505525

PATIENT
  Age: 26 Year
  Sex: Female
  Weight: 120 kg

DRUGS (27)
  1. TACROLIMUS. [Concomitant]
     Active Substance: TACROLIMUS
     Indication: IMMUNOSUPPRESSION
     Dosage: 2.5MG AM, 3MG PM
     Route: 048
     Dates: end: 20151223
  2. RESPRIM [Concomitant]
     Indication: INFECTION PROPHYLAXIS
     Dosage: 160MG-800MG, HALF TABLET IN THE MORNING
     Route: 048
  3. FERRO-GRADUMET                     /00023503/ [Concomitant]
     Indication: ANAEMIA
     Dosage: 325 MG, QD IN THE MORNING
     Route: 048
  4. LERCANIDIPINE [Concomitant]
     Active Substance: LERCANIDIPINE
     Indication: HYPERTENSION
     Dosage: 20 MG, QD
     Route: 048
  5. METOPROLOL. [Concomitant]
     Active Substance: METOPROLOL
     Dosage: 50 MG, BID
     Route: 048
     Dates: start: 20151224
  6. PANAFCORTELONE [Concomitant]
     Active Substance: PREDNISOLONE
     Indication: IMMUNOSUPPRESSION
     Dosage: 7 MG, QD
     Route: 048
     Dates: start: 20151008, end: 20151023
  7. TACROLIMUS. [Concomitant]
     Active Substance: TACROLIMUS
     Dosage: 2 MG, BID
     Route: 048
     Dates: start: 20151224
  8. ASPIRIN. [Concomitant]
     Active Substance: ASPIRIN
     Indication: THROMBOSIS PROPHYLAXIS
     Dosage: 100 MG, QD IN THE MORNING
     Route: 048
  9. MYFORTIC [Concomitant]
     Active Substance: MYCOPHENOLATE SODIUM
     Indication: IMMUNOSUPPRESSION
     Dosage: 180 MG, BID
     Route: 048
  10. PANAFCORTELONE [Concomitant]
     Active Substance: PREDNISOLONE
     Dosage: 8 MG, QD IN THE MORNING
     Route: 048
  11. FERRO-GRADUMET                     /00023503/ [Concomitant]
     Indication: MINERAL SUPPLEMENTATION
  12. DIAMICRON [Concomitant]
     Active Substance: GLICLAZIDE
     Indication: DIABETES MELLITUS
     Dosage: 60 MG, QD
     Route: 048
  13. OSTEVIT-D [Concomitant]
     Indication: OSTEOPOROSIS PROPHYLAXIS
     Dosage: 25 ?G, QD IN THE MORNING
     Route: 065
  14. ARANESP [Concomitant]
     Active Substance: DARBEPOETIN ALFA
     Indication: ANAEMIA
     Dosage: 40 ?G, EVERY TWO WEEKS
     Route: 058
  15. ARANESP [Concomitant]
     Active Substance: DARBEPOETIN ALFA
     Indication: ANAEMIA PROPHYLAXIS
  16. ECULIZUMAB [Suspect]
     Active Substance: ECULIZUMAB
     Indication: HAEMOLYTIC URAEMIC SYNDROME
     Dosage: 1200 MG, Q2W
     Route: 042
     Dates: start: 20151104, end: 20151104
  17. BETALOC [Concomitant]
     Active Substance: METOPROLOL TARTRATE
     Indication: HYPERTENSION
     Dosage: 75 MG, BID
     Route: 048
     Dates: start: 20151104
  18. MYCOPHENOLATE MOFETIL. [Concomitant]
     Active Substance: MYCOPHENOLATE MOFETIL
     Indication: IMMUNOSUPPRESSION
     Dosage: 180 MG, BID
     Route: 048
  19. PANTOPRAZOLE [Concomitant]
     Active Substance: PANTOPRAZOLE SODIUM
     Indication: GASTROOESOPHAGEAL REFLUX DISEASE
     Dosage: 40 MG, QD
     Route: 048
  20. ECULIZUMAB [Suspect]
     Active Substance: ECULIZUMAB
     Dosage: 1200 MG, Q2W
     Route: 042
     Dates: start: 20160113, end: 20160113
  21. RESPRIM [Concomitant]
     Dosage: 80/400 MG, QD
     Route: 048
  22. OSTELIN                            /00107901/ [Concomitant]
     Indication: SUPPLEMENTATION THERAPY
     Dosage: 25 ?G, QD
     Route: 048
  23. METOPROLOL. [Concomitant]
     Active Substance: METOPROLOL
     Indication: HYPERTENSION
     Dosage: 75 MG, BID
     Route: 048
     Dates: start: 20151104, end: 20151223
  24. PANTOPRAZOLE [Concomitant]
     Active Substance: PANTOPRAZOLE SODIUM
     Indication: GASTROOESOPHAGEAL REFLUX PROPHYLAXIS
  25. ECULIZUMAB [Suspect]
     Active Substance: ECULIZUMAB
     Dosage: 1200 MG, Q2W
     Route: 042
     Dates: start: 20151216, end: 20151216
  26. DIAMICRON [Concomitant]
     Active Substance: GLICLAZIDE
     Dosage: 60 MG, QD IN THE MORNING
     Route: 048
  27. SODIBIC [Concomitant]
     Indication: ACID BASE BALANCE
     Dosage: 840 MG, TID
     Route: 048

REACTIONS (1)
  - Escherichia sepsis [Recovered/Resolved]

NARRATIVE: CASE EVENT DATE: 20151224
